FAERS Safety Report 18619212 (Version 1)
Quarter: 2020Q4

REPORT INFORMATION
  Report Type: Spontaneous
  Country: GB (occurrence: GB)
  Receive Date: 20201215
  Receipt Date: 20201215
  Transmission Date: 20210114
  Serious: Yes (Life-Threatening)
  Sender: FDA-Public Use
  Company Number: NVSC2020GB332018

PATIENT
  Age: 73 Year
  Sex: Female
  Weight: 97.5 kg

DRUGS (1)
  1. RIBOCICLIB. [Suspect]
     Active Substance: RIBOCICLIB
     Indication: BREAST CANCER METASTATIC
     Dosage: UNK (600MG DAILY REDUCED TO 400MG DAILY (JUNE 2019 FOR NEUTROPENIA) FOR 21 DAYS IN 28 DAY CYCLES)
     Route: 048
     Dates: start: 20190312, end: 20201113

REACTIONS (1)
  - Acute myeloid leukaemia [Unknown]

NARRATIVE: CASE EVENT DATE: 20201113
